FAERS Safety Report 13528691 (Version 1)
Quarter: 2017Q2

REPORT INFORMATION
  Report Type: Report from Study
  Country: US (occurrence: US)
  Receive Date: 20170509
  Receipt Date: 20170509
  Transmission Date: 20170830
  Serious: No
  Sender: FDA-Public Use
  Company Number: GXBR2017US001415

PATIENT
  Age: 56 Year
  Sex: Female

DRUGS (2)
  1. ZARXIO [Suspect]
     Active Substance: FILGRASTIM-SNDZ
     Indication: LYMPHOPENIA
     Dosage: UNK DF, UNK
     Route: 065
     Dates: start: 20160926, end: 20161007
  2. ZARXIO [Suspect]
     Active Substance: FILGRASTIM-SNDZ
     Indication: NEUTROPENIA

REACTIONS (1)
  - Musculoskeletal discomfort [Unknown]

NARRATIVE: CASE EVENT DATE: 20161007
